FAERS Safety Report 7805010-X (Version None)
Quarter: 2011Q4

REPORT INFORMATION
  Report Type: 
  Country: None (occurrence: None)
  Receive Date: 20111010
  Receipt Date: 20111003
  Transmission Date: 20120403
  Serious: Yes (Hospitalization)
  Sender: FDA-Public Use
  Company Number: US-GLAXOSMITHKLINE-A0933251A

PATIENT
  Sex: Male
  Weight: 87.3 kg

DRUGS (7)
  1. PANTOPRAZOLE [Concomitant]
  2. LOVAZA [Concomitant]
  3. ADVAIR DISKUS 100/50 [Suspect]
     Indication: ASTHMA
     Dosage: 1PUFF TWICE PER DAY
     Route: 055
     Dates: start: 20030101
  4. ALBUTEROL [Concomitant]
  5. VIT D [Concomitant]
  6. MULTIPLE VITAMIN [Concomitant]
  7. VIT E [Concomitant]

REACTIONS (5)
  - HEADACHE [None]
  - THYROID DISORDER [None]
  - DEPRESSED LEVEL OF CONSCIOUSNESS [None]
  - PNEUMONIA [None]
  - DYSPHONIA [None]
